FAERS Safety Report 5367887-X (Version None)
Quarter: 2007Q2

REPORT INFORMATION
  Report Type: 
  Country: None (occurrence: None)
  Receive Date: 20070622
  Receipt Date: 20070618
  Transmission Date: 20071010
  Serious: Yes (Hospitalization)
  Sender: FDA-Public Use
  Company Number: JP-ROXANE LABORATORIES, INC-2007-BP-11250RO

PATIENT
  Age: 72 Year
  Sex: Female
  Weight: 52 kg

DRUGS (5)
  1. DIGOXIN [Suspect]
     Dosage: 0.125 MG/DAY
  2. FUROSEMIDE [Suspect]
  3. LOSARTAN POTASSIUM [Suspect]
  4. CARVEDILOL [Suspect]
  5. SPIRONOLACTONE [Suspect]

REACTIONS (10)
  - ACUTE PRERENAL FAILURE [None]
  - ANOREXIA [None]
  - ATRIOVENTRICULAR BLOCK FIRST DEGREE [None]
  - BLOOD CREATININE INCREASED [None]
  - BLOOD POTASSIUM INCREASED [None]
  - DEHYDRATION [None]
  - DIARRHOEA [None]
  - PHOTOPSIA [None]
  - THERAPEUTIC AGENT TOXICITY [None]
  - VISUAL ACUITY REDUCED [None]
